FAERS Safety Report 5670036-1 (Version None)
Quarter: 2008Q1

REPORT INFORMATION
  Report Type: 
  Country: None (occurrence: None)
  Receive Date: 20080312
  Receipt Date: 20080229
  Transmission Date: 20080703
  Serious: Yes (Death, Hospitalization)
  Sender: FDA-Public Use
  Company Number: 2006VX001787

PATIENT
  Age: 59 Year
  Sex: Female

DRUGS (3)
  1. TASMAR [Suspect]
     Dosage: 100 MG;TID;PO
     Route: 048
     Dates: end: 19980101
  2. SINEMET [Concomitant]
  3. CHEMOTHERAPY [Concomitant]

REACTIONS (3)
  - METASTASES TO LIVER [None]
  - RESPIRATORY DISTRESS [None]
  - SEPTIC SHOCK [None]
